FAERS Safety Report 4383259-9 (Version None)
Quarter: 2004Q2

REPORT INFORMATION
  Report Type: 
  Country: None (occurrence: None)
  Receive Date: 20040618
  Receipt Date: 20040604
  Transmission Date: 20050107
  Serious: Yes (Other)
  Sender: FDA-Public Use
  Company Number: 2004-0007120

PATIENT
  Age: 39 Year
  Sex: Male

DRUGS (4)
  1. VIREAD [Suspect]
     Indication: HIV INFECTION
     Dosage: 300 MG, ORAL
     Route: 048
     Dates: start: 20020201, end: 20040401
  2. 3TC (LAMIVUDINE) [Concomitant]
  3. EFAVIRENZ (EFAVIRENZ) [Concomitant]
  4. PENICILLIN [Concomitant]

REACTIONS (4)
  - BLOOD CREATINE PHOSPHOKINASE INCREASED [None]
  - MUSCLE DISORDER [None]
  - MUSCULAR WEAKNESS [None]
  - OEDEMA [None]
